FAERS Safety Report 16135421 (Version 1)
Quarter: 2019Q1

REPORT INFORMATION
  Report Type: Spontaneous
  Country: US (occurrence: US)
  Receive Date: 20190329
  Receipt Date: 20190329
  Transmission Date: 20190418
  Serious: No
  Sender: FDA-Public Use
  Company Number: US-BAUSCH-BL-2018-012255

PATIENT
  Age: 84 Year
  Sex: Female

DRUGS (1)
  1. RENOVA [Suspect]
     Active Substance: TRETINOIN
     Indication: DRY SKIN
     Dosage: USED THE PRODUCT ON HER FACE
     Route: 061

REACTIONS (3)
  - Skin texture abnormal [Recovering/Resolving]
  - Dry skin [Recovering/Resolving]
  - Skin wrinkling [Recovering/Resolving]

NARRATIVE: CASE EVENT DATE: 201804
